FAERS Safety Report 4971366-9 (Version None)
Quarter: 2006Q2

REPORT INFORMATION
  Report Type: 
  Country: None (occurrence: None)
  Receive Date: 20060413
  Receipt Date: 20051229
  Transmission Date: 20061013
  Serious: Yes (Other)
  Sender: FDA-Public Use
  Company Number: 2005UW19553

PATIENT
  Age: 84 Year
  Sex: Male
  Weight: 81.8 kg

DRUGS (4)
  1. CRESTOR [Suspect]
     Indication: HYPERLIPIDAEMIA
     Route: 048
     Dates: start: 20050701
  2. ALLOPURINOL [Concomitant]
  3. ISOSORBIDE [Concomitant]
  4. OMEPRAZOLE [Concomitant]

REACTIONS (3)
  - BLOOD CREATINE PHOSPHOKINASE INCREASED [None]
  - ILL-DEFINED DISORDER [None]
  - MYOSITIS [None]
